FAERS Safety Report 7897290 (Version 2)
Quarter: 2013Q2

REPORT INFORMATION
  Report Type: Report from Study
  Country: DE (occurrence: DE)
  Receive Date: 20110413
  Receipt Date: 20130625
  Transmission Date: 20140414
  Serious: Yes (Death, Hospitalization, Other)
  Sender: FDA-Public Use
  Company Number: DE-CELGENEUS-062-20785-11033425

PATIENT
  Sex: 0

DRUGS (6)
  1. THALIDOMIDE [Suspect]
     Indication: PLASMA CELL MYELOMA
     Dosage: D 1-28
     Route: 048
  2. THALIDOMIDE [Suspect]
     Dosage: D 1-28
     Route: 048
  3. CYCLOPHOSPHAMIDE [Suspect]
     Indication: PLASMA CELL MYELOMA
     Dosage: D 1-4
     Route: 065
  4. IDARUBICIN [Suspect]
     Indication: PLASMA CELL MYELOMA
     Dosage: 8-10
     Route: 048
  5. IDARUBICIN [Suspect]
     Dosage: 2.5 MILLIGRAM
     Route: 048
  6. DEXAMETHASONE [Suspect]
     Indication: PLASMA CELL MYELOMA
     Route: 065

REACTIONS (15)
  - Death [Fatal]
  - Haematotoxicity [Unknown]
  - Pneumonia [Unknown]
  - Neutropenia [Unknown]
  - Leukopenia [Unknown]
  - Thrombocytopenia [Unknown]
  - Anaemia [Unknown]
  - Neuropathy peripheral [Unknown]
  - Plasma cell myeloma [Unknown]
  - Adverse event [Unknown]
  - Nausea [Unknown]
  - Vomiting [Unknown]
  - Stomatitis [Unknown]
  - Diarrhoea [Unknown]
  - Constipation [Unknown]
